FAERS Safety Report 25795902 (Version 1)
Quarter: 2025Q3

REPORT INFORMATION
  Report Type: Spontaneous
  Country: EU (occurrence: EU)
  Receive Date: 20250912
  Receipt Date: 20250912
  Transmission Date: 20251020
  Serious: Yes (Hospitalization)
  Sender: RANBAXY
  Company Number: EU-AFSSAPS-PO2025000576

PATIENT
  Age: 30 Year
  Sex: Male
  Weight: 85 kg

DRUGS (3)
  1. TESTOSTERONE [Suspect]
     Active Substance: TESTOSTERONE
     Indication: Product use in unapproved indication
     Route: 065
  2. METHENOLONE [Suspect]
     Active Substance: METHENOLONE
     Indication: Product use in unapproved indication
     Route: 058
  3. TRENBOLONE [Suspect]
     Active Substance: TRENBOLONE
     Indication: Product use in unapproved indication
     Route: 058

REACTIONS (4)
  - Petechiae [Unknown]
  - Haematuria [Recovered/Resolved]
  - Gingival bleeding [Recovered/Resolved]
  - Fibrin D dimer increased [Unknown]

NARRATIVE: CASE EVENT DATE: 20250401
